FAERS Safety Report 11787280 (Version 1)
Quarter: 2015Q4

REPORT INFORMATION
  Report Type: Spontaneous
  Country: US (occurrence: US)
  Receive Date: 20151130
  Receipt Date: 20151130
  Transmission Date: 20160305
  Serious: Yes (Other)
  Sender: FDA-Public Use
  Company Number: US-SA-2015SA189536

PATIENT
  Age: 72 Year
  Sex: Male

DRUGS (2)
  1. LANTUS SOLOSTAR [Suspect]
     Active Substance: INSULIN GLARGINE
     Indication: TYPE 1 DIABETES MELLITUS
     Dosage: DOSE:37 UNIT(S)
     Route: 065
     Dates: start: 2004
  2. SOLOSTAR [Concomitant]
     Active Substance: DEVICE
     Indication: TYPE 1 DIABETES MELLITUS
     Dates: start: 2004

REACTIONS (2)
  - Colon cancer [Unknown]
  - Hypoacusis [Unknown]

NARRATIVE: CASE EVENT DATE: 2004
